FAERS Safety Report 14921601 (Version 2)
Quarter: 2018Q2

REPORT INFORMATION
  Report Type: Spontaneous
  Country: FR (occurrence: FR)
  Receive Date: 20180522
  Receipt Date: 20180528
  Transmission Date: 20180711
  Serious: Yes (Other)
  Sender: FDA-Public Use
  Company Number: FR-MERCK KGAA-2048192

PATIENT
  Age: 53 Year
  Sex: Female

DRUGS (1)
  1. NOVOTHYROX [Suspect]
     Active Substance: LEVOTHYROXINE SODIUM
     Indication: PRODUCT USED FOR UNKNOWN INDICATION

REACTIONS (23)
  - Bilirubin conjugated increased [None]
  - Alopecia [Recovered/Resolved]
  - Somnolence [Recovering/Resolving]
  - Asthenia [Recovering/Resolving]
  - Dyspnoea [Recovering/Resolving]
  - Blood cholesterol abnormal [Recovering/Resolving]
  - Gait disturbance [Recovering/Resolving]
  - Blood bilirubin increased [None]
  - Musculoskeletal stiffness [Recovering/Resolving]
  - Blood albumin increased [None]
  - Fatigue [Recovered/Resolved]
  - Monocyte count decreased [None]
  - Platelet distribution width increased [None]
  - Platelet distribution width increased [None]
  - Major depression [Recovering/Resolving]
  - Hypogammaglobulinaemia [None]
  - Feeling cold [Recovering/Resolving]
  - Weight increased [Recovering/Resolving]
  - Vision blurred [Recovered/Resolved]
  - Ageusia [Recovering/Resolving]
  - Blood bilirubin unconjugated increased [None]
  - Decreased appetite [Recovering/Resolving]
  - Sleep disorder [Recovering/Resolving]

NARRATIVE: CASE EVENT DATE: 20170121
